FAERS Safety Report 19819945 (Version 2)
Quarter: 2021Q3

REPORT INFORMATION
  Report Type: Report from Study
  Country: MX (occurrence: MX)
  Receive Date: 20210913
  Receipt Date: 20210916
  Transmission Date: 20211014
  Serious: Yes (Other)
  Sender: FDA-Public Use
  Company Number: MX-UCBSA-2021042474

PATIENT
  Sex: Female
  Weight: 40 kg

DRUGS (3)
  1. BRIVARACETAM [Suspect]
     Active Substance: BRIVARACETAM
     Indication: EPILEPSY
     Dosage: 100MG .125 DOSAGE FORM, 2X/DAY (BID)
     Route: 048
     Dates: start: 20210310
  2. KEPPRA [Suspect]
     Active Substance: LEVETIRACETAM
     Indication: EPILEPSY
     Dosage: 500 MG , .5 DOSAGE FORM, 2X/DAY (BID)
     Route: 048
  3. EPAMIN [PHENYTOIN SODIUM] [Concomitant]
     Indication: EPILEPSY
     Dosage: 1 DOSAGE FORM, 2X/DAY (BID)
     Route: 048

REACTIONS (2)
  - Product use issue [Unknown]
  - Petit mal epilepsy [Not Recovered/Not Resolved]
